FAERS Safety Report 14154889 (Version 1)
Quarter: 2017Q4

REPORT INFORMATION
  Report Type: Spontaneous
  Country: US (occurrence: None)
  Receive Date: 20171102
  Receipt Date: 20171102
  Transmission Date: 20180321
  Serious: Yes (Hospitalization)
  Sender: FDA-Public Use
  Company Number: None

PATIENT
  Age: 33 Year
  Sex: Female

DRUGS (1)
  1. STELARA [Suspect]
     Active Substance: USTEKINUMAB
     Indication: PSORIASIS
     Dosage: 45MG EVERY 12 WEEKS SC
     Route: 058
     Dates: start: 20160830

REACTIONS (4)
  - Drug dose omission [None]
  - Insurance issue [None]
  - Cystitis [None]
  - Therapy cessation [None]

NARRATIVE: CASE EVENT DATE: 20170920
